FAERS Safety Report 22718075 (Version 6)
Quarter: 2023Q4

REPORT INFORMATION
  Report Type: Report from Study
  Country: RO (occurrence: RO)
  Receive Date: 20230718
  Receipt Date: 20231019
  Transmission Date: 20240110
  Serious: Yes (Hospitalization, Other)
  Sender: FDA-Public Use
  Company Number: RO-002147023-NVSC2023RO123840

PATIENT

DRUGS (14)
  1. RUXOLITINIB [Suspect]
     Active Substance: RUXOLITINIB
     Indication: Spleen disorder
     Dosage: 20 MILLIGRAM, BID
     Route: 048
     Dates: start: 202302, end: 20230519
  2. RUXOLITINIB [Suspect]
     Active Substance: RUXOLITINIB
     Indication: Red blood cell abnormality
     Dosage: 5 MG, BID
     Route: 048
     Dates: start: 202302, end: 20230519
  3. RUXOLITINIB [Suspect]
     Active Substance: RUXOLITINIB
     Indication: Leukaemia
     Dosage: 25 MG, BID (IN THE MORNING AND EVENING)
     Route: 065
  4. RUXOLITINIB [Suspect]
     Active Substance: RUXOLITINIB
     Dosage: UNK (PILLS)
     Route: 065
     Dates: start: 202306
  5. RUXOLITINIB [Suspect]
     Active Substance: RUXOLITINIB
     Dosage: 25 MG, BID (2X/DAY)
     Route: 048
     Dates: start: 202302, end: 202308
  6. NITROGLYCERIN [Concomitant]
     Active Substance: NITROGLYCERIN
     Indication: Cardiac disorder
     Dosage: 2 MG, BID (MORNING AND EVENING)
     Route: 065
     Dates: start: 202009
  7. NITROGLYCERIN [Concomitant]
     Active Substance: NITROGLYCERIN
     Dosage: 6 MG, BID (MORNING AND EVENING)
     Route: 065
     Dates: start: 202009
  8. ATORVASTATIN [Concomitant]
     Active Substance: ATORVASTATIN
     Indication: Cardiac disorder
     Dosage: 10 MG, QD (EVENING)
     Route: 065
     Dates: start: 202009
  9. ASPIRIN [Concomitant]
     Active Substance: ASPIRIN
     Indication: Cardiac disorder
     Dosage: 75 MG, QD (AFTERNOON)
     Route: 065
     Dates: start: 202009
  10. CLOPIDOGREL [Concomitant]
     Active Substance: CLOPIDOGREL BISULFATE
     Indication: Cardiac disorder
     Dosage: 75 MG, QD (AFTERNOON)
     Route: 065
     Dates: start: 202009
  11. BISOPROLOL FUMARATE [Concomitant]
     Active Substance: BISOPROLOL FUMARATE
     Indication: Cardiac disorder
     Dosage: 2 MG
     Route: 065
     Dates: start: 202009
  12. BISOPROLOL FUMARATE [Concomitant]
     Active Substance: BISOPROLOL FUMARATE
     Dosage: 5 MG
     Route: 065
     Dates: start: 202009
  13. ALLOPURINOL [Concomitant]
     Active Substance: ALLOPURINOL
     Indication: Cardiac disorder
     Dosage: 300 MG, QD
     Route: 065
     Dates: start: 202009
  14. TRIMETAZIDINE DIHYDROCHLORIDE [Concomitant]
     Active Substance: TRIMETAZIDINE DIHYDROCHLORIDE
     Indication: Cardiac disorder
     Dosage: 35 MG BID (1 IN THE MORNING 1 IN THE EVENING))
     Route: 065
     Dates: start: 202009

REACTIONS (13)
  - Condition aggravated [Recovered/Resolved]
  - Somnolence [Recovered/Resolved]
  - Illness [Recovered/Resolved]
  - Asthenia [Recovered/Resolved]
  - Illness [Not Recovered/Not Resolved]
  - Haemoglobin decreased [Not Recovered/Not Resolved]
  - Abdominal pain upper [Not Recovered/Not Resolved]
  - Product use in unapproved indication [Not Recovered/Not Resolved]
  - Liver function test abnormal [Unknown]
  - Abdominal distension [Recovered/Resolved]
  - Abdominal distension [Unknown]
  - Product availability issue [Recovered/Resolved]
  - White blood cell count increased [Not Recovered/Not Resolved]

NARRATIVE: CASE EVENT DATE: 20230201
